FAERS Safety Report 10077246 (Version 2)
Quarter: 2014Q2

REPORT INFORMATION
  Report Type: Spontaneous
  Country: US (occurrence: US)
  Receive Date: 20140414
  Receipt Date: 20140414
  Transmission Date: 20141212
  Serious: No
  Sender: FDA-Public Use
  Company Number: US-BANPHARM-20131130

PATIENT
  Age: 85 Year
  Sex: Female
  Weight: 64.86 kg

DRUGS (7)
  1. ALEVE LIQUID GELS 220 MG [Suspect]
     Indication: BACK PAIN
     Dosage: 2 DF, QD,
     Route: 048
  2. VITAMINS [Concomitant]
  3. PRESERVISION [Concomitant]
  4. PROZAC [Concomitant]
  5. CALCIUM WITH VITAMIN D [Concomitant]
  6. KLONOPIN [Concomitant]
  7. ZOCOR [Concomitant]

REACTIONS (2)
  - Drug ineffective [Unknown]
  - Incorrect dose administered [Unknown]
